FAERS Safety Report 8789124 (Version 1)
Quarter: 2012Q4

REPORT INFORMATION
  Report Type: Spontaneous
  Country: US (occurrence: None)
  Receive Date: 20120904
  Receipt Date: 20120904
  Transmission Date: 20130627
  Serious: Yes (Life-Threatening)
  Sender: FDA-Public Use
  Company Number: 100311-000054

PATIENT
  Age: 23 Year
  Sex: Female

DRUGS (2)
  1. PROACTIV RENEWING CLEANSER [Suspect]
     Indication: ACNE
     Dosage: ONCE DAILY, DERMAL
     Route: 061
     Dates: start: 20100224, end: 20100225
  2. PROACTIV REPAIRING TREATMENT [Suspect]
     Indication: ACNE
     Route: 061

REACTIONS (2)
  - Chemical injury [None]
  - Anaphylactic reaction [None]
